FAERS Safety Report 10704985 (Version 2)
Quarter: 2015Q1

REPORT INFORMATION
  Report Type: Spontaneous
  Country: BR (occurrence: BR)
  Receive Date: 20150112
  Receipt Date: 20150225
  Transmission Date: 20150721
  Serious: Yes (Hospitalization, Other)
  Sender: FDA-Public Use
  Company Number: BR-SA-2015SA002549

PATIENT
  Sex: Female
  Weight: 85 kg

DRUGS (9)
  1. LOSARTAN [Concomitant]
     Active Substance: LOSARTAN
     Indication: BLOOD PRESSURE
     Dosage: STARTED SINCE APPROX. 1 YEAR
  2. NEOSALDINA [Concomitant]
     Indication: ANALGESIC THERAPY
     Dosage: 1 TABLET, WHEN NEEDED, STARTED SINCE APPROX. 15 YEARS
  3. NIMESULIDE [Concomitant]
     Active Substance: NIMESULIDE
     Indication: ANTIINFLAMMATORY THERAPY
     Dosage: 2 TABLETS DAILY, WHEN NECESSARY, STARTED SINCE APPROX. 1 MONTH
  4. LABIRIN [Concomitant]
     Active Substance: BETAHISTINE
     Indication: LABYRINTHITIS
     Dosage: STARTED SINCE APPROX. 2 YEARS
  5. AMOXICILLIN. [Concomitant]
     Active Substance: AMOXICILLIN
     Indication: PHARYNGITIS
     Dosage: 1 TABLET EVERY 8 HOURS, WHEN NEEDED, STARTED SINCE APPROX. 8 YEARS
  6. LANTUS [Suspect]
     Active Substance: INSULIN GLARGINE
     Indication: TYPE 2 DIABETES MELLITUS
     Dosage: TREATMENT START DSTE: SINCE APPROX. 5 YEARS
     Route: 065
  7. DEVICE NOS [Concomitant]
     Active Substance: DEVICE
     Indication: DEVICE THERAPY
     Dates: start: 201401
  8. HUMALOG [Concomitant]
     Active Substance: INSULIN LISPRO
     Indication: TYPE 2 DIABETES MELLITUS
  9. HYDROCHLOROTHIAZIDE. [Concomitant]
     Active Substance: HYDROCHLOROTHIAZIDE
     Indication: DIURETIC THERAPY
     Dosage: STARTED SINCE APPROX. 3 YEARS

REACTIONS (8)
  - Seizure [Recovered/Resolved]
  - Pyrexia [Recovered/Resolved]
  - Pruritus [Recovered/Resolved]
  - Lung infection [Recovered/Resolved]
  - Cataract operation [Unknown]
  - Application site reaction [Recovered/Resolved]
  - Pain [Recovered/Resolved]
  - Blood glucose increased [Unknown]

NARRATIVE: CASE EVENT DATE: 2013
